FAERS Safety Report 9839145 (Version 1)
Quarter: 2014Q1

REPORT INFORMATION
  Report Type: Spontaneous
  Country: GB (occurrence: GB)
  Receive Date: 20140123
  Receipt Date: 20140123
  Transmission Date: 20141002
  Serious: Yes (Other)
  Sender: FDA-Public Use
  Company Number: PHHY2014GB005057

PATIENT
  Age: 78 Year
  Sex: Male

DRUGS (4)
  1. AMLODIPINE [Suspect]
  2. TAFLUPROST [Concomitant]
     Indication: GLAUCOMA
     Route: 061
  3. ATENOLOL [Concomitant]
  4. SIMVASTATIN [Concomitant]

REACTIONS (2)
  - Pemphigoid [Unknown]
  - Symblepharon [Unknown]
